FAERS Safety Report 9601155 (Version 2)
Quarter: 2013Q4

REPORT INFORMATION
  Report Type: Spontaneous
  Country: US (occurrence: US)
  Receive Date: 20131004
  Receipt Date: 20131004
  Transmission Date: 20140711
  Serious: No
  Sender: FDA-Public Use
  Company Number: US-AMGEN-USASP2013036678

PATIENT
  Age: 59 Year
  Sex: Female

DRUGS (4)
  1. ENBREL [Suspect]
     Indication: PRODUCT USED FOR UNKNOWN INDICATION
     Dosage: 50 MG, QWK
     Route: 058
  2. NEXIUM                             /01479302/ [Concomitant]
     Dosage: 40 MG, UNK
  3. CARAFATE [Concomitant]
     Dosage: 1 G, UNK
  4. LOSARTAN POTASSIUM [Concomitant]
     Dosage: 25 MG, UNK

REACTIONS (2)
  - Injection site pain [Unknown]
  - Injection site erythema [Unknown]
